FAERS Safety Report 9049003 (Version 2)
Quarter: 2013Q1

REPORT INFORMATION
  Report Type: Spontaneous
  Country: DE (occurrence: None)
  Receive Date: 20130117
  Receipt Date: 20130117
  Transmission Date: 20140127
  Serious: Yes (Life-Threatening, Hospitalization, Other)
  Sender: FDA-Public Use
  Company Number: 2013-000080

PATIENT
  Age: 74 Year
  Sex: Female

DRUGS (9)
  1. ACTONEL [Suspect]
     Indication: OSTEOPOROSIS
     Route: 048
     Dates: start: 200502, end: 200610
  2. INFLIXIMAB [Suspect]
     Indication: RHEUMATOID ARTHRITIS
     Dosage: 200 TO 400 MGF ECERY SIX TO EIGHT WEEKS, INTRAVENOUS
     Route: 042
     Dates: start: 200507, end: 200810
  3. TOCILIZUMAB [Suspect]
     Indication: RHEUMATOID ARTHRITIS
     Dosage: 576 MG SINGLE DOSE, INTRAVENOUS
     Route: 042
     Dates: start: 2008, end: 2008
  4. MTX [Concomitant]
  5. FOLIC ACID [Concomitant]
  6. PREDNISOLONE [Concomitant]
  7. IBUPROFEN [Concomitant]
  8. PANTOPRAZOLE [Concomitant]
  9. CALCIUM VITAMIN D [Concomitant]

REACTIONS (9)
  - Osteonecrosis of jaw [None]
  - Dental fistula [None]
  - Abscess jaw [None]
  - Abscess oral [None]
  - Sepsis [None]
  - Respiratory distress [None]
  - Osteomyelitis [None]
  - Cellulitis [None]
  - Cellulitis [None]
